FAERS Safety Report 7441786-1 (Version None)
Quarter: 2011Q2

REPORT INFORMATION
  Report Type: 
  Country: None (occurrence: None)
  Receive Date: 20110428
  Receipt Date: 20110421
  Transmission Date: 20111010
  Serious: Yes (Other)
  Sender: FDA-Public Use
  Company Number: US-PFIZER INC-2011087921

PATIENT
  Sex: Female
  Weight: 86 kg

DRUGS (5)
  1. REBIF [Suspect]
     Indication: MULTIPLE SCLEROSIS
     Dosage: 44MCG, THREE TIMES PER WEEK
     Route: 058
     Dates: start: 20100218
  2. NAPROXEN SODIUM [Suspect]
     Indication: PAIN
     Dosage: 550 MG, UNK
     Dates: start: 20100222, end: 20100311
  3. LISINOPRIL [Concomitant]
     Indication: BLOOD PRESSURE
     Dosage: 10 MG, 1X/DAY
     Route: 048
     Dates: start: 20090609
  4. ADVIL [Suspect]
     Indication: PAIN
     Dosage: 200 MG, EVERY 4 TO 6 HRS AS NEEDED
     Route: 048
     Dates: start: 20081001
  5. REBIF [Suspect]
     Dosage: 22MCG, THREE TIMES PER WEEK
     Route: 058
     Dates: start: 20100311, end: 20100407

REACTIONS (5)
  - WHITE BLOOD CELL COUNT INCREASED [None]
  - ALANINE AMINOTRANSFERASE INCREASED [None]
  - ASPARTATE AMINOTRANSFERASE INCREASED [None]
  - RED BLOOD CELL COUNT DECREASED [None]
  - BLOOD GLUCOSE INCREASED [None]
